FAERS Safety Report 15544551 (Version 1)
Quarter: 2018Q4

REPORT INFORMATION
  Report Type: Spontaneous
  Country: FR (occurrence: FR)
  Receive Date: 20181024
  Receipt Date: 20181024
  Transmission Date: 20190205
  Serious: Yes (Hospitalization)
  Sender: FDA-Public Use
  Company Number: FR-ACCORD-073782

PATIENT
  Age: 51 Year
  Sex: Female

DRUGS (2)
  1. RULID [Interacting]
     Active Substance: ROXITHROMYCIN
     Indication: LUNG DISORDER
     Route: 048
     Dates: start: 20171122, end: 201711
  2. ESCITALOPRAM [Suspect]
     Active Substance: ESCITALOPRAM OXALATE
     Indication: DEPRESSION
     Route: 048
     Dates: start: 2017, end: 20171122

REACTIONS (3)
  - Electrocardiogram QT prolonged [Recovered/Resolved]
  - Potentiating drug interaction [Unknown]
  - Malaise [Recovered/Resolved]

NARRATIVE: CASE EVENT DATE: 20171122
